FAERS Safety Report 4992122-1 (Version None)
Quarter: 2006Q2

REPORT INFORMATION
  Report Type: 
  Country: None (occurrence: None)
  Receive Date: 20060502
  Receipt Date: 20060424
  Transmission Date: 20061013
  Serious: Yes (Death, Life-Threatening, Hospitalization)
  Sender: FDA-Public Use
  Company Number: 2006-00870

PATIENT
  Age: 49 Year
  Sex: Male
  Weight: 64 kg

DRUGS (2)
  1. VELCADE [Suspect]
     Dosage: 3.00 MG, INTRAVENOUS
     Route: 042
     Dates: start: 20060327, end: 20060327
  2. RITUXIMAB (RITUXIMAB) SOLUTION (EXCEPT SYRUP) [Suspect]
     Dates: start: 20060327

REACTIONS (13)
  - ANAEMIA [None]
  - ASCITES [None]
  - ESCHERICHIA SEPSIS [None]
  - GENERAL PHYSICAL HEALTH DETERIORATION [None]
  - MALIGNANT NEOPLASM PROGRESSION [None]
  - NEUTROPENIA [None]
  - NON-HODGKIN'S LYMPHOMA [None]
  - PLEURAL EFFUSION [None]
  - PNEUMONIA [None]
  - RENAL FAILURE ACUTE [None]
  - RESPIRATORY DISTRESS [None]
  - SPLENOMEGALY [None]
  - THROMBOCYTOPENIA [None]
